FAERS Safety Report 21293190 (Version 5)
Quarter: 2022Q4

REPORT INFORMATION
  Report Type: Report from Study
  Country: US (occurrence: US)
  Receive Date: 20220905
  Receipt Date: 20221117
  Transmission Date: 20230113
  Serious: Yes (Other)
  Sender: FDA-Public Use
  Company Number: US-TAKEDA-2022TUS018996

PATIENT
  Age: 13 Year
  Sex: Male

DRUGS (10)
  1. ADVATE [Suspect]
     Active Substance: ANTIHEMOPHILIC FACTOR, HUMAN RECOMBINANT
     Indication: Prophylaxis
     Dosage: 1988 INTERNATIONAL UNIT
     Route: 065
  2. ADVATE [Suspect]
     Active Substance: ANTIHEMOPHILIC FACTOR, HUMAN RECOMBINANT
     Indication: Prophylaxis
     Dosage: 1988 INTERNATIONAL UNIT
     Route: 065
  3. ADVATE [Suspect]
     Active Substance: ANTIHEMOPHILIC FACTOR, HUMAN RECOMBINANT
     Indication: Prophylaxis
     Dosage: 1988 INTERNATIONAL UNIT
     Route: 065
  4. ADVATE [Suspect]
     Active Substance: ANTIHEMOPHILIC FACTOR, HUMAN RECOMBINANT
     Dosage: 994 INTERNATIONAL UNIT
     Route: 065
  5. ADVATE [Suspect]
     Active Substance: ANTIHEMOPHILIC FACTOR, HUMAN RECOMBINANT
     Dosage: 994 INTERNATIONAL UNIT
     Route: 065
  6. ADVATE [Suspect]
     Active Substance: ANTIHEMOPHILIC FACTOR, HUMAN RECOMBINANT
     Dosage: 994 INTERNATIONAL UNIT
     Route: 065
  7. ADVATE [Suspect]
     Active Substance: ANTIHEMOPHILIC FACTOR, HUMAN RECOMBINANT
     Dosage: 1940 INTERNATIONAL UNIT
     Route: 042
  8. ADVATE [Suspect]
     Active Substance: ANTIHEMOPHILIC FACTOR, HUMAN RECOMBINANT
     Dosage: 1940 INTERNATIONAL UNIT
     Route: 042
  9. ADVATE [Suspect]
     Active Substance: ANTIHEMOPHILIC FACTOR, HUMAN RECOMBINANT
     Dosage: 1940 INTERNATIONAL UNIT
     Route: 042
  10. HEMLIBRA [Suspect]
     Active Substance: EMICIZUMAB-KXWH
     Indication: Product used for unknown indication
     Dosage: UNK
     Route: 065

REACTIONS (8)
  - Muscle haemorrhage [Unknown]
  - Skin laceration [Unknown]
  - Facial bones fracture [Unknown]
  - Joint swelling [Recovered/Resolved]
  - Injury [Unknown]
  - Ligament sprain [Unknown]
  - Fall [Unknown]
  - Joint injury [Unknown]

NARRATIVE: CASE EVENT DATE: 20220319
